FAERS Safety Report 9680155 (Version 2)
Quarter: 2014Q1

REPORT INFORMATION
  Report Type: Spontaneous
  Country: US (occurrence: US)
  Receive Date: 20131111
  Receipt Date: 20140102
  Transmission Date: 20141002
  Serious: Yes (Hospitalization)
  Sender: FDA-Public Use
  Company Number: US-009507513-1311USA003048

PATIENT
  Sex: 0

DRUGS (2)
  1. PEGINTRON [Suspect]
     Indication: CHRONIC HEPATITIS C
     Dosage: 1.5 MICROGRAM PER KILOGRAM, QW
  2. REBETOL [Suspect]
     Indication: CHRONIC HEPATITIS C
     Dosage: 800-1200 MG DAILY
     Route: 048

REACTIONS (1)
  - Chest pain [Unknown]
